FAERS Safety Report 7319115-3 (Version None)
Quarter: 2011Q1

REPORT INFORMATION
  Report Type: 
  Country: None (occurrence: None)
  Receive Date: 20110228
  Receipt Date: 20110216
  Transmission Date: 20110831
  Serious: Yes (Hospitalization, Other)
  Sender: FDA-Public Use
  Company Number: US-NOVOPROD-323530

PATIENT
  Age: 48 Year
  Sex: Male
  Weight: 151.93 kg

DRUGS (5)
  1. METFORMIN [Concomitant]
     Indication: TYPE 2 DIABETES MELLITUS
  2. VICTOZA [Suspect]
     Dosage: 1.8 MG, QD
     Dates: start: 20101217, end: 20110208
  3. VICTOZA [Suspect]
     Indication: TYPE 2 DIABETES MELLITUS
     Dosage: 0.6 MG, QD
     Dates: start: 20101123
  4. PRAVASTATIN [Concomitant]
     Indication: BLOOD CHOLESTEROL INCREASED
  5. VICTOZA [Suspect]
     Dosage: 1.2 MG, QD

REACTIONS (6)
  - DIARRHOEA [None]
  - WEIGHT DECREASED [None]
  - VOMITING [None]
  - PANCREATITIS [None]
  - ABDOMINAL PAIN [None]
  - NAUSEA [None]
